FAERS Safety Report 7157446-0 (Version None)
Quarter: 2010Q4

REPORT INFORMATION
  Report Type: 
  Country: None (occurrence: None)
  Receive Date: 20101214
  Receipt Date: 20101202
  Transmission Date: 20110411
  Serious: Yes (Hospitalization, Congenital Anomaly)
  Sender: FDA-Public Use
  Company Number: A0899573A

PATIENT
  Sex: Male

DRUGS (1)
  1. PAXIL [Suspect]
     Indication: DEPRESSION
     Dosage: 20MG UNKNOWN
     Dates: start: 19990601

REACTIONS (6)
  - BICUSPID AORTIC VALVE [None]
  - CONGENITAL TRICUSPID VALVE ATRESIA [None]
  - DRUG EXPOSURE DURING PREGNANCY [None]
  - LUNG DISORDER [None]
  - PATENT DUCTUS ARTERIOSUS [None]
  - VENTRICULAR HYPOPLASIA [None]
